FAERS Safety Report 8198183-3 (Version None)
Quarter: 2012Q1

REPORT INFORMATION
  Report Type: 
  Country: None (occurrence: None)
  Receive Date: 20120309
  Receipt Date: 20111214
  Transmission Date: 20120608
  Serious: No
  Sender: FDA-Public Use
  Company Number: US-AMGEN-USASP2011066544

PATIENT
  Age: 64 Year
  Sex: Female

DRUGS (3)
  1. PREVACID [Concomitant]
  2. CALCIUM [Concomitant]
  3. PROLIA [Suspect]
     Indication: OSTEOPOROSIS POSTMENOPAUSAL
     Dates: start: 20110614

REACTIONS (3)
  - ALOPECIA [None]
  - ECZEMA [None]
  - RASH [None]
